FAERS Safety Report 9309837 (Version 1)
Quarter: 2013Q2

REPORT INFORMATION
  Report Type: Spontaneous
  Country: US (occurrence: US)
  Receive Date: 20130525
  Receipt Date: 20130525
  Transmission Date: 20140414
  Serious: No
  Sender: FDA-Public Use
  Company Number: US201210007011

PATIENT
  Age: 69 Year
  Sex: Female
  Weight: 92.29 kg

DRUGS (13)
  1. BYDUREON 2MG VIAL + SYRINGE [Suspect]
     Indication: TYPE 2 DIABETES MELLITUS
     Route: 058
     Dates: start: 20121004
  2. BYDUREON 2MG VIAL + SYRINGE [Suspect]
     Indication: TYPE 2 DIABETES MELLITUS
     Route: 058
     Dates: start: 20120926
  3. METFORMIN [Concomitant]
     Indication: TYPE 2 DIABETES MELLITUS
     Route: 048
  4. LANTUS [Concomitant]
     Indication: TYPE 2 DIABETES MELLITUS
     Route: 058
  5. LANTUS [Concomitant]
     Indication: TYPE 2 DIABETES MELLITUS
     Route: 058
  6. NOVOLOG [Concomitant]
     Indication: TYPE 2 DIABETES MELLITUS
     Route: 058
  7. NOVOLOG [Concomitant]
     Indication: TYPE 2 DIABETES MELLITUS
     Route: 058
  8. TORSEMIDE [Concomitant]
     Indication: FLUID RETENTION
     Route: 048
  9. TORSEMIDE [Concomitant]
     Indication: FLUID RETENTION
     Route: 048
  10. TORSEMIDE [Concomitant]
     Indication: FLUID RETENTION
     Route: 048
  11. TORSEMIDE [Concomitant]
     Indication: FLUID RETENTION
     Route: 048
  12. METAMUCIL [Concomitant]
  13. MILK OF MAGNESIA [Concomitant]

REACTIONS (9)
  - Blood glucose increased [Not Recovered/Not Resolved]
  - Weight increased [Not Recovered/Not Resolved]
  - Fluid retention [Not Recovered/Not Resolved]
  - Diarrhoea [Recovered/Resolved]
  - Constipation [Recovering/Resolving]
  - Decreased appetite [Recovered/Resolved]
  - Injection site haemorrhage [Recovered/Resolved]
  - Underdose [Recovered/Resolved]
  - Off label use [Not Recovered/Not Resolved]
